FAERS Safety Report 7077322-1 (Version None)
Quarter: 2010Q4

REPORT INFORMATION
  Report Type: 
  Country: None (occurrence: None)
  Receive Date: 20101022
  Receipt Date: 20101005
  Transmission Date: 20110411
  Serious: Yes (Death, Life-Threatening, Disabling, Other)
  Sender: FDA-Public Use
  Company Number: 2010P1002072

PATIENT

DRUGS (2)
  1. CARBAMAZEPINE [Suspect]
  2. CARBAMAZEPINE (APOTEX) (NO PREF. NAME) [Suspect]

REACTIONS (26)
  - ACTIVITIES OF DAILY LIVING IMPAIRED [None]
  - ALOPECIA [None]
  - ANHEDONIA [None]
  - ANXIETY [None]
  - EMOTIONAL DISTRESS [None]
  - HYPERSENSITIVITY [None]
  - IMPAIRED WORK ABILITY [None]
  - MENTAL DISORDER [None]
  - MUCOUS MEMBRANE DISORDER [None]
  - MULTI-ORGAN DISORDER [None]
  - MULTIPLE INJURIES [None]
  - NAIL DISORDER [None]
  - PAIN [None]
  - PIGMENTATION DISORDER [None]
  - PRURITUS [None]
  - RASH [None]
  - SCAR [None]
  - SKIN DISCOLOURATION [None]
  - SKIN EXFOLIATION [None]
  - SKIN LESION [None]
  - SKIN SWELLING [None]
  - STEVENS-JOHNSON SYNDROME [None]
  - THERMAL BURN [None]
  - TOXIC EPIDERMAL NECROLYSIS [None]
  - URTICARIA [None]
  - VISUAL IMPAIRMENT [None]
